FAERS Safety Report 5019272-8 (Version None)
Quarter: 2006Q2

REPORT INFORMATION
  Report Type: 
  Country: None (occurrence: None)
  Receive Date: 20060530
  Receipt Date: 20050622
  Transmission Date: 20061013
  Serious: Yes (Other)
  Sender: FDA-Public Use
  Company Number: 2005092260

PATIENT

DRUGS (2)
  1. LYRICA [Suspect]
     Indication: ILL-DEFINED DISORDER
     Dosage: 150 MG (75 MCG/KG, 2 IN 1 D), ORAL
     Route: 048
  2. OXYCONTIN [Concomitant]

REACTIONS (1)
  - THROAT TIGHTNESS [None]
